FAERS Safety Report 5112566-7 (Version None)
Quarter: 2006Q3

REPORT INFORMATION
  Report Type: 
  Country: None (occurrence: None)
  Receive Date: 20060922
  Receipt Date: 20060105
  Transmission Date: 20061208
  Serious: Yes (Other)
  Sender: FDA-Public Use
  Company Number: US-ROCHE-431089

PATIENT
  Age: 55 Year
  Sex: Female
  Weight: 54.4 kg

DRUGS (6)
  1. PEGASYS [Suspect]
     Route: 058
     Dates: start: 20051025
  2. COPEGUS [Suspect]
     Route: 048
     Dates: start: 20051025
  3. COPEGUS [Suspect]
     Route: 048
     Dates: start: 20051111, end: 20051116
  4. COPEGUS [Suspect]
     Route: 048
     Dates: start: 20051201
  5. COPEGUS [Suspect]
     Route: 048
     Dates: start: 20051220, end: 20051222
  6. PROCRIT [Concomitant]
     Dosage: FREQUENCY= WEEKLY
     Route: 058
     Dates: start: 20051116, end: 20051222

REACTIONS (5)
  - CARDIOSPASM [None]
  - GASTRITIS [None]
  - GASTROOESOPHAGEAL SPHINCTER INSUFFICIENCY [None]
  - HIATUS HERNIA [None]
  - OESOPHAGITIS [None]
